FAERS Safety Report 5323484-3 (Version None)
Quarter: 2007Q2

REPORT INFORMATION
  Report Type: 
  Country: None (occurrence: None)
  Receive Date: 20070508
  Receipt Date: 20070423
  Transmission Date: 20071010
  Serious: Yes (Hospitalization, Other)
  Sender: FDA-Public Use
  Company Number: 100#08#2007-01486

PATIENT
  Age: 65 Year
  Sex: Female

DRUGS (6)
  1. CITALOPRAM HYDROBROMIDE [Suspect]
     Indication: DEPRESSION
  2. FENTANYL [Suspect]
     Indication: BACK PAIN
     Dosage: 25 UG/H; DURING HOSPITALISATION
     Route: 061
  3. RABIPRAZOLE (RABEPRAZOLE) (RABEPRAZOLE) [Concomitant]
  4. TOLTERODINE (TOLTERODINE) (TOLTERODINE) [Concomitant]
  5. HYDROCODONE (HYDROCODONE) (HYDROCODONE) [Concomitant]
  6. OVER-THE-COUNTER NON-STEROIDAL ANIT-INFLAMMATORY MEDICATIONS (UNKNOWN) [Concomitant]

REACTIONS (10)
  - ABDOMINAL PAIN [None]
  - AGGRESSION [None]
  - BACK PAIN [None]
  - BLOOD ALKALINE PHOSPHATASE INCREASED [None]
  - DRUG INTERACTION [None]
  - MYELODYSPLASTIC SYNDROME [None]
  - MYELOPROLIFERATIVE DISORDER [None]
  - RETROPERITONEAL HAEMORRHAGE [None]
  - SEROTONIN SYNDROME [None]
  - WHITE BLOOD CELL COUNT INCREASED [None]
